FAERS Safety Report 8400254-0 (Version None)
Quarter: 2012Q2

REPORT INFORMATION
  Report Type: 
  Country: None (occurrence: None)
  Receive Date: 20120525
  Receipt Date: 20120514
  Transmission Date: 20120825
  Serious: Yes (Hospitalization, Other)
  Sender: FDA-Public Use
  Company Number: AUR-APL-2012-02330

PATIENT
  Age: 56 Year
  Sex: Male

DRUGS (6)
  1. NIACIN [Suspect]
     Indication: PRODUCT USED FOR UNKNOWN INDICATION
     Dosage: (500 MG, 1 D), ORAL
     Route: 048
  2. ASPIRINC(ACETYLSALICYLIC ACID) [Concomitant]
  3. FISH OIL(FISH OIL) [Suspect]
     Indication: PRODUCT USED FOR UNKNOWN INDICATION
     Dosage: (2000 MG, 1 D), ORAL
     Route: 048
  4. TRIMETHOPRIM + SULFAMETHOXAZOLE [Suspect]
     Indication: COUGH
  5. LOSARTAN POTASSIUM [Concomitant]
  6. UBIQUINONE (COENZYME Q10 /03913201/) [Concomitant]

REACTIONS (2)
  - STEVENS-JOHNSON SYNDROME [None]
  - DRUG RASH WITH EOSINOPHILIA AND SYSTEMIC SYMPTOMS [None]
